FAERS Safety Report 6764847-9 (Version None)
Quarter: 2010Q2

REPORT INFORMATION
  Report Type: 
  Country: None (occurrence: None)
  Receive Date: 20100610
  Receipt Date: 20100602
  Transmission Date: 20101027
  Serious: Yes (Hospitalization)
  Sender: FDA-Public Use
  Company Number: JP-ABBOTT-10P-087-0649109-00

PATIENT
  Age: 3 Year

DRUGS (12)
  1. KLARICID SUSPENSION [Suspect]
     Indication: DRUG USE FOR UNKNOWN INDICATION
  2. ALPINY [Suspect]
     Indication: DRUG USE FOR UNKNOWN INDICATION
  3. AMOXICILLIN AND CLAVULANATE POTASSIUM [Suspect]
     Indication: DRUG USE FOR UNKNOWN INDICATION
  4. TRANSAMIN [Suspect]
     Indication: DRUG USE FOR UNKNOWN INDICATION
  5. ASVERIN [Suspect]
     Indication: DRUG USE FOR UNKNOWN INDICATION
  6. SAWACILLIN [Suspect]
     Indication: DRUG USE FOR UNKNOWN INDICATION
  7. ZADITEN [Suspect]
     Indication: DRUG USE FOR UNKNOWN INDICATION
  8. BERACHIN [Suspect]
     Indication: DRUG USE FOR UNKNOWN INDICATION
  9. ACDEAM [Suspect]
     Indication: DRUG USE FOR UNKNOWN INDICATION
  10. MUCODYNE [Suspect]
     Indication: DRUG USE FOR UNKNOWN INDICATION
  11. ANTIBIOTICS-RESISTANT LACTIC ACID BACTERIAE [Suspect]
     Indication: DRUG USE FOR UNKNOWN INDICATION
  12. MIYA BM [Suspect]
     Indication: DRUG USE FOR UNKNOWN INDICATION

REACTIONS (1)
  - ERYTHEMA MULTIFORME [None]
